FAERS Safety Report 4334026-3 (Version None)
Quarter: 2004Q2

REPORT INFORMATION
  Report Type: 
  Country: None (occurrence: None)
  Receive Date: 20040402
  Receipt Date: 20040325
  Transmission Date: 20050107
  Serious: Yes (Hospitalization)
  Sender: FDA-Public Use
  Company Number: 2004204065JP

PATIENT
  Age: 5 Year
  Sex: Male
  Weight: 91.6 kg

DRUGS (4)
  1. GENOTROPIN [Suspect]
     Indication: SMALL FOR DATES BABY
     Dosage: 0.067MG/KG, DAILY, SUBCUTAENOUS
     Route: 058
     Dates: start: 20020315, end: 20031230
  2. GENOTROPIN [Suspect]
     Indication: SMALL FOR DATES BABY
     Dosage: 0.067MG/KG, DAILY, SUBCUTAENOUS
     Route: 058
     Dates: start: 20040103
  3. THEO-DUR [Concomitant]
  4. BECOTIDE (BECLOMETASONE DIPROPIONATE [Concomitant]

REACTIONS (2)
  - PYREXIA [None]
  - UPPER RESPIRATORY TRACT INFLAMMATION [None]
